FAERS Safety Report 6503750-6 (Version None)
Quarter: 2009Q4

REPORT INFORMATION
  Report Type: 
  Country: None (occurrence: None)
  Receive Date: 20091217
  Receipt Date: 20091106
  Transmission Date: 20100525
  Serious: Yes (Death, Hospitalization, Other)
  Sender: FDA-Public Use
  Company Number: US-BAXTER-2009BH013629

PATIENT
  Age: 56 Year
  Sex: Male
  Weight: 122 kg

DRUGS (14)
  1. HEPARIN SODIUM INJECTION [Suspect]
     Indication: THROMBOSIS PROPHYLAXIS
     Route: 010
     Dates: start: 20070401, end: 20070614
  2. HEPARIN SODIUM INJECTION [Suspect]
     Route: 010
     Dates: start: 20070407
  3. VANCOMYCIN [Suspect]
     Indication: SKIN ULCER
     Route: 065
  4. VANCOMYCIN [Suspect]
     Indication: PNEUMONIA PNEUMOCOCCAL
     Route: 065
  5. VANCOMYCIN [Suspect]
     Indication: STAPHYLOCOCCAL INFECTION
     Route: 065
  6. ZOSYN [Suspect]
     Indication: SKIN ULCER
     Route: 065
  7. ZOSYN [Suspect]
     Indication: PNEUMONIA PNEUMOCOCCAL
     Route: 065
  8. ZOSYN [Suspect]
     Indication: STAPHYLOCOCCAL INFECTION
     Route: 065
  9. DIFLUCAN [Suspect]
     Indication: SKIN ULCER
     Route: 065
  10. DIFLUCAN [Suspect]
     Indication: PNEUMONIA PNEUMOCOCCAL
     Route: 065
  11. DIFLUCAN [Suspect]
     Indication: STAPHYLOCOCCAL INFECTION
     Route: 065
  12. GLUCOTROL [Concomitant]
     Indication: DRUG USE FOR UNKNOWN INDICATION
     Route: 065
  13. LISINOPRIL [Concomitant]
     Indication: DRUG USE FOR UNKNOWN INDICATION
     Route: 065
  14. AMLODIPINE [Concomitant]
     Indication: DRUG USE FOR UNKNOWN INDICATION
     Route: 065

REACTIONS (30)
  - ADRENAL INSUFFICIENCY [None]
  - CHILLS [None]
  - CHOLELITHIASIS [None]
  - CLOSTRIDIUM DIFFICILE COLITIS [None]
  - COCCIDIOIDOMYCOSIS [None]
  - CONFUSIONAL STATE [None]
  - DECUBITUS ULCER [None]
  - DIABETES MELLITUS [None]
  - DIARRHOEA [None]
  - DIZZINESS [None]
  - DYSPNOEA [None]
  - FUNGAEMIA [None]
  - HAEMATEMESIS [None]
  - HEADACHE [None]
  - HYPERTENSION [None]
  - HYPOTENSION [None]
  - IMPAIRED GASTRIC EMPTYING [None]
  - LETHARGY [None]
  - MALNUTRITION [None]
  - MYOPATHY [None]
  - NAUSEA [None]
  - ORGAN FAILURE [None]
  - PANCYTOPENIA [None]
  - PNEUMONIA PNEUMOCOCCAL [None]
  - RASH [None]
  - RENAL FAILURE CHRONIC [None]
  - SEPTIC SHOCK [None]
  - UNRESPONSIVE TO STIMULI [None]
  - URINARY TRACT INFECTION [None]
  - VOMITING [None]
